FAERS Safety Report 23617643 (Version 1)
Quarter: 2024Q1

REPORT INFORMATION
  Report Type: Spontaneous
  Country: US (occurrence: None)
  Receive Date: 20240310
  Receipt Date: 20240310
  Transmission Date: 20240409
  Serious: Yes (Hospitalization)
  Sender: FDA-Public Use
  Company Number: None

PATIENT
  Age: 78 Year
  Sex: Male
  Weight: 100.5 kg

DRUGS (1)
  1. CEMIPLIMAB [Suspect]
     Active Substance: CEMIPLIMAB
     Indication: Squamous cell carcinoma
     Dosage: OTHER FREQUENCY : Q21D;?
     Dates: start: 20231206, end: 20240117

REACTIONS (1)
  - Myocarditis [None]

NARRATIVE: CASE EVENT DATE: 20240127
